FAERS Safety Report 6469109-5 (Version None)
Quarter: 2009Q4

REPORT INFORMATION
  Report Type: 
  Country: None (occurrence: None)
  Receive Date: 20091203
  Receipt Date: 20090617
  Transmission Date: 20100525
  Serious: Yes (Hospitalization)
  Sender: FDA-Public Use
  Company Number: US-ELI_LILLY_AND_COMPANY-US200708001187

PATIENT
  Sex: Male

DRUGS (9)
  1. BYETTA [Suspect]
     Indication: TYPE 2 DIABETES MELLITUS
     Dosage: 1 MONTH
     Route: 058
     Dates: start: 20070416, end: 20070514
  2. BYETTA [Suspect]
     Dosage: 10 UG, 3 MONTHS
     Route: 058
     Dates: start: 20070514, end: 20070701
  3. METFORMIN HCL [Concomitant]
     Dosage: UNK, DAILY (1/D)
     Route: 065
  4. LANTUS [Concomitant]
     Dosage: 22 U, DAILY (1/D)
     Route: 065
  5. MULTIVITAMIN /01229101/ [Concomitant]
     Dosage: UNK, UNKNOWN
     Route: 065
  6. TRICOR [Concomitant]
     Dosage: UNK, DAILY (1/D)
     Route: 065
  7. UNIRETIC [Concomitant]
     Dosage: UNK, UNKNOWN
     Route: 065
  8. ASPIRIN [Concomitant]
     Dosage: UNK, DAILY (1/D)
     Route: 065
  9. TENORETIC 100 [Concomitant]
     Dosage: UNK, UNKNOWN
     Route: 065

REACTIONS (5)
  - AGITATION [None]
  - ANXIETY [None]
  - PANCREATITIS ACUTE [None]
  - RENAL INJURY [None]
  - WEIGHT DECREASED [None]
